FAERS Safety Report 5634935-9 (Version None)
Quarter: 2008Q1

REPORT INFORMATION
  Report Type: 
  Country: None (occurrence: None)
  Receive Date: 20080221
  Receipt Date: 20080221
  Transmission Date: 20080703
  Serious: Yes (Other)
  Sender: FDA-Public Use
  Company Number: None

PATIENT
  Age: 11 Year
  Sex: Male
  Weight: 31.7518 kg

DRUGS (1)
  1. ABILIFY [Suspect]
     Indication: ADVERSE EVENT
     Dosage: PO
     Route: 048

REACTIONS (7)
  - AGGRESSION [None]
  - ANGER [None]
  - FEELING OF DESPAIR [None]
  - FRUSTRATION [None]
  - IRRITABILITY [None]
  - PERSONALITY CHANGE [None]
  - SUICIDAL IDEATION [None]
